FAERS Safety Report 5831553-4 (Version None)
Quarter: 2008Q3

REPORT INFORMATION
  Report Type: 
  Country: None (occurrence: None)
  Receive Date: 20080801
  Receipt Date: 20080723
  Transmission Date: 20090109
  Serious: Yes (Other)
  Sender: FDA-Public Use
  Company Number: BR-PFIZER INC-2008062059

PATIENT
  Sex: Male

DRUGS (2)
  1. FRONTAL [Suspect]
     Indication: ANXIETY
  2. METFORMIN HCL [Concomitant]
     Indication: DIABETES MELLITUS

REACTIONS (1)
  - VISUAL IMPAIRMENT [None]
